FAERS Safety Report 5331638-5 (Version None)
Quarter: 2007Q2

REPORT INFORMATION
  Report Type: 
  Country: None (occurrence: None)
  Receive Date: 20070516
  Receipt Date: 20070508
  Transmission Date: 20071010
  Serious: Yes (Hospitalization)
  Sender: FDA-Public Use
  Company Number: 163-21880-07040391

PATIENT
  Age: 62 Year
  Sex: Male

DRUGS (5)
  1. REVLIMID [Suspect]
     Indication: METASTATIC RENAL CELL CARCINOMA
     Dosage: 25 MG, 3 WEEKS ON, 1 WEEK OFF Q 21 DAYS, ORAL
     Route: 048
     Dates: start: 20070319, end: 20070401
  2. TYLENOL [Concomitant]
  3. AVALIDE (KARVEA HCT) [Concomitant]
  4. PRILOSEC [Concomitant]
  5. HYZAAR [Concomitant]

REACTIONS (1)
  - GOUT [None]
